FAERS Safety Report 14342874 (Version 1)
Quarter: 2017Q4

REPORT INFORMATION
  Report Type: Spontaneous
  Country: US (occurrence: US)
  Receive Date: 20171229
  Receipt Date: 20171229
  Transmission Date: 20180321
  Serious: Yes (Other)
  Sender: FDA-Public Use
  Company Number: None

PATIENT
  Age: 57 Year
  Sex: Female
  Weight: 83.25 kg

DRUGS (1)
  1. OSELTAMIVIR CAP 75MG [Suspect]
     Active Substance: OSELTAMIVIR
     Indication: INFLUENZA
     Dosage: ?          QUANTITY:10 CAPSULE(S);?
     Route: 048
     Dates: start: 20171221, end: 20171226

REACTIONS (5)
  - Urticaria [None]
  - Swelling face [None]
  - Throat tightness [None]
  - Lip swelling [None]
  - Chest discomfort [None]

NARRATIVE: CASE EVENT DATE: 20171227
